FAERS Safety Report 7830489-7 (Version None)
Quarter: 2011Q4

REPORT INFORMATION
  Report Type: 
  Country: None (occurrence: None)
  Receive Date: 20111021
  Receipt Date: 20111019
  Transmission Date: 20120403
  Serious: Yes (Other)
  Sender: FDA-Public Use
  Company Number: US-PFIZER INC-2011252555

PATIENT
  Sex: Female
  Weight: 58.957 kg

DRUGS (1)
  1. CELEBREX [Suspect]
     Indication: LOCALISED INFECTION
     Dosage: 200 MG, 1X/DAY
     Route: 048
     Dates: start: 20110928, end: 20111007

REACTIONS (2)
  - SWELLING FACE [None]
  - RASH [None]
